FAERS Safety Report 26145345 (Version 1)
Quarter: 2025Q4

REPORT INFORMATION
  Report Type: Spontaneous
  Country: MX (occurrence: MX)
  Receive Date: 20251211
  Receipt Date: 20251211
  Transmission Date: 20260118
  Serious: Yes (Other)
  Sender: AMGEN
  Company Number: MX-AMGEN-MEXSP2025243343

PATIENT
  Age: 16 Year
  Sex: Female

DRUGS (4)
  1. BEVACIZUMAB [Suspect]
     Active Substance: BEVACIZUMAB
     Indication: Adenocarcinoma of colon
     Dosage: UNK
     Route: 065
  2. FLUOROURACIL\IRINOTECAN\LEUCOVORIN [Concomitant]
     Active Substance: FLUOROURACIL\IRINOTECAN\LEUCOVORIN
     Indication: Adenocarcinoma of colon
  3. CETUXIMAB [Concomitant]
     Active Substance: CETUXIMAB
     Indication: Adenocarcinoma of colon
  4. SORAFENIB [Concomitant]
     Active Substance: SORAFENIB
     Indication: Adenocarcinoma of colon

REACTIONS (8)
  - Metastases to peritoneum [Unknown]
  - Metastases to liver [Unknown]
  - Uterine cancer [Unknown]
  - Adenocarcinoma of colon [Unknown]
  - Mesenteric neoplasm [Unknown]
  - Gene mutation [Unknown]
  - TP53 gene mutation [Unknown]
  - Lymphadenopathy [Unknown]
